FAERS Safety Report 5353869-0 (Version None)
Quarter: 2007Q2

REPORT INFORMATION
  Report Type: 
  Country: None (occurrence: None)
  Receive Date: 20070608
  Receipt Date: 20070525
  Transmission Date: 20071010
  Serious: Yes (Other)
  Sender: FDA-Public Use
  Company Number: 2007SI000237

PATIENT
  Age: 55 Year
  Sex: Male
  Weight: 87 kg

DRUGS (2)
  1. CUBICIN [Suspect]
     Indication: ARTHRITIS BACTERIAL
     Dosage: 5.7 MG/KG;Q24H;IV
     Route: 042
  2. CUBICIN [Suspect]
     Indication: STAPHYLOCOCCAL INFECTION
     Dosage: 5.7 MG/KG;Q24H;IV
     Route: 042

REACTIONS (2)
  - ANAEMIA [None]
  - OCCULT BLOOD POSITIVE [None]
